FAERS Safety Report 24463913 (Version 1)
Quarter: 2024Q4

REPORT INFORMATION
  Report Type: Report from Study
  Country: US (occurrence: US)
  Receive Date: 20241018
  Receipt Date: 20241018
  Transmission Date: 20250114
  Serious: No
  Sender: ROCHE
  Company Number: US-ROCHE-3490665

PATIENT
  Age: 42 Year
  Sex: Male

DRUGS (4)
  1. XOLAIR [Suspect]
     Active Substance: OMALIZUMAB
     Indication: Idiopathic urticaria
     Dosage: FROM OF STRENGTH 150 MG/ML
     Route: 058
  2. XOLAIR [Suspect]
     Active Substance: OMALIZUMAB
  3. PREDNISONE [Suspect]
     Active Substance: PREDNISONE
     Indication: Product used for unknown indication
     Route: 065
  4. LEVOCETIRIZINE [Concomitant]
     Active Substance: LEVOCETIRIZINE
     Route: 048

REACTIONS (7)
  - Urticaria [Not Recovered/Not Resolved]
  - COVID-19 [Unknown]
  - Abdominal distension [Unknown]
  - Mood swings [Unknown]
  - Anxiety [Unknown]
  - Peripheral swelling [Unknown]
  - Gout [Unknown]
